FAERS Safety Report 11586925 (Version 3)
Quarter: 2017Q4

REPORT INFORMATION
  Report Type: Spontaneous
  Country: US (occurrence: US)
  Receive Date: 20151001
  Receipt Date: 20171221
  Transmission Date: 20180320
  Serious: No
  Sender: FDA-Public Use
  Company Number: US-PFIZER INC-2015321093

PATIENT
  Age: 68 Year
  Sex: Female

DRUGS (15)
  1. LYRICA [Suspect]
     Active Substance: PREGABALIN
     Dosage: 50 MG, 3X/DAY
     Route: 048
     Dates: start: 20171107
  2. MOTRIN [Concomitant]
     Active Substance: IBUPROFEN
     Indication: PAIN
     Dosage: 1 DF, AS NEEDED (EVERY 12 (TWELVE) HOURS)
     Route: 048
     Dates: start: 20150729
  3. NORCO [Concomitant]
     Active Substance: ACETAMINOPHEN\HYDROCODONE BITARTRATE
     Indication: PAIN
     Dosage: 1 DF,(EVERY 6 (SIX) HOURS) (HYDROCODONE BITARTRATE: 5MG; PARACETAMOL: 325MG)
     Route: 048
     Dates: start: 20150729
  4. LYRICA [Suspect]
     Active Substance: PREGABALIN
     Dosage: 25 MG, 3X/DAY
     Route: 048
     Dates: start: 20170105
  5. ASCORBIC ACID. [Concomitant]
     Active Substance: ASCORBIC ACID
     Dosage: 1000 MG, DAILY
     Route: 048
  6. ZESTORETIC [Concomitant]
     Active Substance: HYDROCHLOROTHIAZIDE\LISINOPRIL
     Dosage: 1 DF, DAILY (HYDROCHLOROTHIAZIDE:10; LISINOPRIL: 12.5)
     Route: 048
  7. CELEBREX [Concomitant]
     Active Substance: CELECOXIB
     Dosage: UNK
  8. HYDROCODONE/ACETAMINOPHEN [Concomitant]
     Active Substance: ACETAMINOPHEN\HYDROCODONE
     Dosage: UNK
  9. TIZANIDINE. [Concomitant]
     Active Substance: TIZANIDINE
     Dosage: UNK
  10. PROVENTIL [Concomitant]
     Active Substance: ALBUTEROL
     Indication: WHEEZING
     Dosage: 3 ML, AS NEEDED (BY NEBULIZATION EVERY 6 (SIX) HOURS)
     Dates: start: 20150609
  11. LYRICA [Suspect]
     Active Substance: PREGABALIN
     Dosage: 50 MG, 3X/DAY
     Route: 048
     Dates: start: 20150506
  12. FOLVITE [Concomitant]
     Active Substance: FOLIC ACID
     Dosage: 1 DF, DAILY
     Route: 048
     Dates: start: 20130608
  13. VENLAFAXINE [Concomitant]
     Active Substance: VENLAFAXINE HYDROCHLORIDE
     Dosage: UNK
  14. ADVIL [Concomitant]
     Active Substance: IBUPROFEN
     Indication: PAIN
     Dosage: 1 DF, AS NEEDED (EVERY 12 (TWELVE) HOURS)
     Route: 048
     Dates: start: 20150729
  15. PRINZIDE [Concomitant]
     Active Substance: HYDROCHLOROTHIAZIDE\LISINOPRIL
     Dosage: UNK (HYDROCHLOROTHIAZIDE:10; LISINOPRIL DIHYDRATE: 12.5)
     Route: 048

REACTIONS (4)
  - Blood pressure increased [Unknown]
  - Back pain [Unknown]
  - Pain in extremity [Unknown]
  - Condition aggravated [Unknown]

NARRATIVE: CASE EVENT DATE: 20150828
